FAERS Safety Report 15291329 (Version 1)
Quarter: 2018Q3

REPORT INFORMATION
  Report Type: Report from Study
  Country: None (occurrence: CA)
  Receive Date: 20180817
  Receipt Date: 20180817
  Transmission Date: 20181010
  Serious: Yes (Other)
  Sender: FDA-Public Use
  Company Number: CA-ABBVIE-18S-028-2355684-00

PATIENT
  Age: 43 Year
  Sex: Female

DRUGS (2)
  1. NORLUTATE [Concomitant]
     Active Substance: NORETHINDRONE ACETATE
     Indication: HORMONE THERAPY
     Route: 048
     Dates: start: 20180313, end: 20180807
  2. LUPRON DEPOT [Suspect]
     Active Substance: LEUPROLIDE ACETATE
     Indication: ENDOMETRIOSIS
     Route: 030
     Dates: start: 20180313, end: 20180410

REACTIONS (3)
  - Drug effect incomplete [Recovered/Resolved]
  - Hysterectomy [Unknown]
  - Abdominal pain [Recovered/Resolved]

NARRATIVE: CASE EVENT DATE: 20180507
